FAERS Safety Report 5710158-X (Version None)
Quarter: 2008Q2

REPORT INFORMATION
  Report Type: 
  Country: None (occurrence: None)
  Receive Date: 20080418
  Receipt Date: 20071218
  Transmission Date: 20081010
  Serious: No
  Sender: FDA-Public Use
  Company Number: US-ASTRAZENECA-2007UW28644

PATIENT
  Sex: Male

DRUGS (3)
  1. TOPROL-XL [Suspect]
  2. CRESTOR [Concomitant]
  3. TERAZOYSN [Concomitant]

REACTIONS (3)
  - HEADACHE [None]
  - MALAISE [None]
  - NAUSEA [None]
